FAERS Safety Report 10219317 (Version 1)
Quarter: 2014Q2

REPORT INFORMATION
  Report Type: Spontaneous
  Country: DE (occurrence: DE)
  Receive Date: 20140605
  Receipt Date: 20140605
  Transmission Date: 20141212
  Serious: Yes (Hospitalization)
  Sender: FDA-Public Use
  Company Number: DE-ELI_LILLY_AND_COMPANY-DE201405010560

PATIENT
  Sex: Female
  Weight: 1.84 kg

DRUGS (2)
  1. GEMCITABINE HYDROCHLORIDE [Suspect]
     Indication: ADENOCARCINOMA
     Dosage: 1000 MG/M2, OTHER
     Route: 064
  2. CISPLATIN [Suspect]
     Indication: ADENOCARCINOMA
     Dosage: 50 MG/M2, OTHER
     Route: 064

REACTIONS (5)
  - Premature baby [Unknown]
  - Foetal exposure during pregnancy [Unknown]
  - Head circumference abnormal [Unknown]
  - Growth retardation [Unknown]
  - Dyspnoea [Unknown]
